FAERS Safety Report 17152921 (Version 1)
Quarter: 2019Q4

REPORT INFORMATION
  Report Type: Spontaneous
  Country: US (occurrence: US)
  Receive Date: 20191213
  Receipt Date: 20191213
  Transmission Date: 20200122
  Serious: No
  Sender: FDA-Public Use
  Company Number: US-BAUSCH-BL-2019-061656

PATIENT
  Age: 79 Year
  Sex: Female
  Weight: 49 kg

DRUGS (1)
  1. FLUOROURACIL. [Suspect]
     Active Substance: FLUOROURACIL
     Indication: PRECANCEROUS CELLS PRESENT
     Dosage: USED AT 10 AM AND 10 PM
     Route: 065
     Dates: start: 20191031

REACTIONS (3)
  - Product communication issue [Unknown]
  - Erythema [Unknown]
  - Product administration error [Unknown]

NARRATIVE: CASE EVENT DATE: 20191104
